FAERS Safety Report 4781256-2 (Version None)
Quarter: 2005Q3

REPORT INFORMATION
  Report Type: 
  Country: None (occurrence: None)
  Receive Date: 20050928
  Receipt Date: 20040206
  Transmission Date: 20060218
  Serious: Yes (Hospitalization)
  Sender: FDA-Public Use
  Company Number: NL-GLAXOSMITHKLINE-B0322385A

PATIENT
  Age: 49 Year
  Sex: Male
  Weight: 72 kg

DRUGS (21)
  1. LANVIS [Suspect]
     Indication: CROHN'S DISEASE
     Route: 048
     Dates: start: 20021016, end: 20040115
  2. ATOVAQUONE + PROGUANIL HYDROCHLORIDE [Suspect]
     Indication: MALARIA PROPHYLAXIS
     Dosage: 1TAB PER DAY
     Dates: start: 20030710, end: 20030808
  3. PREDNISON [Concomitant]
     Indication: CROHN'S DISEASE
     Dosage: 5MG PER DAY
     Route: 048
     Dates: start: 20020927
  4. HYDROCOBAMINE [Concomitant]
     Indication: DRUG USE FOR UNKNOWN INDICATION
     Dates: start: 20030312
  5. MICONAZOLE [Concomitant]
     Indication: DRUG USE FOR UNKNOWN INDICATION
     Dates: start: 20030502
  6. BUSCOPAN [Concomitant]
     Indication: DRUG USE FOR UNKNOWN INDICATION
     Dates: start: 20030710
  7. CODEINE [Concomitant]
     Indication: DRUG USE FOR UNKNOWN INDICATION
     Dosage: 20MG AS REQUIRED
     Dates: start: 20030915, end: 20030930
  8. ERYTHROMYCIN [Concomitant]
     Indication: DRUG USE FOR UNKNOWN INDICATION
     Dosage: 2TAB TWICE PER DAY
     Dates: start: 20030915, end: 20030922
  9. DICLOFENAC [Concomitant]
     Indication: DRUG USE FOR UNKNOWN INDICATION
     Dosage: 100MG AS REQUIRED
     Dates: start: 20031223, end: 20040115
  10. SALOFALK [Concomitant]
     Indication: DRUG USE FOR UNKNOWN INDICATION
     Dosage: 1EN PER DAY
     Dates: start: 20040309
  11. BECLOMETHASONE DIPROPIONATE [Concomitant]
     Indication: CROHN'S DISEASE
     Dates: start: 20040115
  12. CEFUROXIME AXETIL [Concomitant]
     Indication: DRUG USE FOR UNKNOWN INDICATION
     Dates: start: 20000101
  13. MESALAMINE [Concomitant]
     Indication: DRUG USE FOR UNKNOWN INDICATION
     Dosage: 2TAB THREE TIMES PER DAY
     Dates: start: 20000101
  14. KETOCONAZOLE [Concomitant]
     Indication: DRUG USE FOR UNKNOWN INDICATION
     Dates: start: 20020422
  15. PEVARYL [Concomitant]
     Indication: DRUG USE FOR UNKNOWN INDICATION
     Dates: start: 20041123
  16. FUCITHALMIC [Concomitant]
     Indication: DRUG USE FOR UNKNOWN INDICATION
     Dates: start: 20040823
  17. PROPRANOLOL [Concomitant]
     Indication: DRUG USE FOR UNKNOWN INDICATION
     Dosage: 80MG PER DAY
     Dates: start: 20050711
  18. FERROGRAD [Concomitant]
     Indication: DRUG USE FOR UNKNOWN INDICATION
     Dosage: 1TAB PER DAY
     Dates: start: 20050711
  19. PARACETAMOL [Concomitant]
     Indication: DRUG USE FOR UNKNOWN INDICATION
  20. AZATHIOPRINE [Concomitant]
     Indication: DRUG USE FOR UNKNOWN INDICATION
     Dosage: 2TAB PER DAY
     Dates: start: 20020909
  21. HYDROCORTISONE [Concomitant]
     Indication: DRUG USE FOR UNKNOWN INDICATION
     Dates: start: 20041123

REACTIONS (6)
  - CHOLECYSTITIS [None]
  - HEPATIC CIRRHOSIS [None]
  - HEPATIC FUNCTION ABNORMAL [None]
  - PAIN [None]
  - PLATELET COUNT DECREASED [None]
  - STOMACH DISCOMFORT [None]
